FAERS Safety Report 5215835-5 (Version None)
Quarter: 2007Q1

REPORT INFORMATION
  Report Type: 
  Country: None (occurrence: None)
  Receive Date: 20070118
  Receipt Date: 20070112
  Transmission Date: 20070707
  Serious: Yes (Death, Hospitalization)
  Sender: FDA-Public Use
  Company Number: 163-21880-06120861

PATIENT
  Age: 69 Year
  Sex: Male

DRUGS (1)
  1. REVLIMID [Suspect]
     Indication: MULTIPLE MYELOMA
     Dosage: FOR 3 WEEKS EACH MONTH, ORAL
     Route: 048
     Dates: start: 20060714, end: 20061101

REACTIONS (1)
  - PLATELET COUNT DECREASED [None]
